FAERS Safety Report 7443200-9 (Version None)
Quarter: 2011Q2

REPORT INFORMATION
  Report Type: 
  Country: None (occurrence: None)
  Receive Date: 20110428
  Receipt Date: 20110421
  Transmission Date: 20111010
  Serious: Yes (Other)
  Sender: FDA-Public Use
  Company Number: B0709741A

PATIENT
  Sex: Male

DRUGS (2)
  1. AVOLVE [Suspect]
     Route: 048
     Dates: start: 20110101
  2. HARNAL D [Concomitant]
     Dosage: .2MG PER DAY
     Route: 048
     Dates: start: 20110101

REACTIONS (1)
  - ANAEMIA [None]
